FAERS Safety Report 6390849-0 (Version None)
Quarter: 2009Q4

REPORT INFORMATION
  Report Type: 
  Country: None (occurrence: None)
  Receive Date: 20091006
  Receipt Date: 20091001
  Transmission Date: 20100525
  Serious: Yes (Hospitalization)
  Sender: FDA-Public Use
  Company Number: US-GILEAD-2009-0024359

PATIENT
  Sex: Female
  Weight: 99.88 kg

DRUGS (18)
  1. LETAIRIS [Suspect]
     Indication: PULMONARY ARTERIAL HYPERTENSION
     Route: 048
     Dates: start: 20090718
  2. LASIX [Concomitant]
  3. NORVASC [Concomitant]
  4. COUMADIN [Concomitant]
  5. PROTONIX [Concomitant]
  6. ADVAIR DISKUS 100/50 [Concomitant]
  7. SPIRIVA [Concomitant]
  8. ALLOPURINOL [Concomitant]
  9. LEVOTHYROXINE SODIUM [Concomitant]
  10. PREDNISONE [Concomitant]
  11. PAXIL [Concomitant]
  12. TYLENOL (CAPLET) [Concomitant]
  13. MULTI-VITAMINS [Concomitant]
  14. IBUPROFEN [Concomitant]
  15. FERROUS SULFATE TAB [Concomitant]
  16. VITAMIN B-12 [Concomitant]
  17. PERCOCET [Concomitant]
  18. CALCIUM [Concomitant]

REACTIONS (1)
  - COR PULMONALE [None]
